FAERS Safety Report 8572073-6 (Version None)
Quarter: 2012Q3

REPORT INFORMATION
  Report Type: 
  Country: None (occurrence: None)
  Receive Date: 20120806
  Receipt Date: 20120730
  Transmission Date: 20120928
  Serious: Yes (Other)
  Sender: FDA-Public Use
  Company Number: PHHY2012AU065911

PATIENT

DRUGS (1)
  1. GILENYA [Suspect]

REACTIONS (1)
  - HAND-FOOT-AND-MOUTH DISEASE [None]
